FAERS Safety Report 20976976 (Version 1)
Quarter: 2022Q2

REPORT INFORMATION
  Report Type: Spontaneous
  Country: DE (occurrence: DE)
  Receive Date: 20220617
  Receipt Date: 20220617
  Transmission Date: 20220720
  Serious: Yes (Hospitalization)
  Sender: FDA-Public Use
  Company Number: DE-AMK-258105

PATIENT
  Age: 71 Year
  Sex: Male
  Weight: 130 kg

DRUGS (1)
  1. ALBUMIN HUMAN [Suspect]
     Active Substance: ALBUMIN HUMAN
     Indication: Hypovolaemia
     Route: 065
     Dates: start: 202205

REACTIONS (3)
  - Blood pressure decreased [Unknown]
  - Tachycardia [Unknown]
  - Urticaria [Unknown]

NARRATIVE: CASE EVENT DATE: 20220505
